FAERS Safety Report 5360463-4 (Version None)
Quarter: 2007Q2

REPORT INFORMATION
  Report Type: 
  Country: None (occurrence: None)
  Receive Date: 20070614
  Receipt Date: 20070530
  Transmission Date: 20071010
  Serious: Yes (Other)
  Sender: FDA-Public Use
  Company Number: OSCN-PR-0706S-0248

PATIENT

DRUGS (1)
  1. OMNISCAN [Suspect]
     Indication: INTRACRANIAL ANEURYSM
     Dosage: NR, SINGLE DOSE, I.V.
     Route: 042
     Dates: start: 20070501, end: 20070501

REACTIONS (1)
  - NEPHROGENIC FIBROSING DERMOPATHY [None]
